FAERS Safety Report 6885110-1 (Version None)
Quarter: 2010Q3

REPORT INFORMATION
  Report Type: 
  Country: None (occurrence: None)
  Receive Date: 20100729
  Receipt Date: 20100729
  Transmission Date: 20110219
  Serious: No
  Sender: FDA-Public Use
  Company Number: None

PATIENT
  Sex: Male
  Weight: 59.1 kg

DRUGS (1)
  1. FORTEO [Suspect]
     Indication: MULTIPLE SCLEROSIS
     Dosage: 20 MCG DAILY SUB-Q 057
     Dates: start: 20100615

REACTIONS (4)
  - BONE PAIN [None]
  - EYE SWELLING [None]
  - GAIT DISTURBANCE [None]
  - MENINGITIS [None]
